FAERS Safety Report 13638450 (Version 1)
Quarter: 2017Q2

REPORT INFORMATION
  Report Type: Spontaneous
  Country: US (occurrence: US)
  Receive Date: 20170609
  Receipt Date: 20170609
  Transmission Date: 20170830
  Serious: No
  Sender: FDA-Public Use
  Company Number: US-ASTRAZENECA-2017SE59877

PATIENT
  Age: 402 Month
  Sex: Female
  Weight: 61.7 kg

DRUGS (3)
  1. LO LOESTRIN 24 [Concomitant]
     Indication: ORAL CONTRACEPTION
     Route: 048
  2. SYMBICORT [Suspect]
     Active Substance: BUDESONIDE\FORMOTEROL FUMARATE DIHYDRATE
     Indication: ASTHMA
     Dosage: 160/4.5MCG TWO PUFFS TWO TIMES A DAY
     Route: 055
     Dates: start: 20170521, end: 20170601
  3. SYMBICORT [Suspect]
     Active Substance: BUDESONIDE\FORMOTEROL FUMARATE DIHYDRATE
     Indication: BRONCHITIS
     Dosage: 160/4.5MCG TWO PUFFS TWO TIMES A DAY
     Route: 055
     Dates: start: 20170521, end: 20170601

REACTIONS (4)
  - Product use issue [Recovered/Resolved]
  - Rash [Recovering/Resolving]
  - Off label use of device [Recovered/Resolved]
  - Rash pruritic [Recovering/Resolving]

NARRATIVE: CASE EVENT DATE: 201705
